FAERS Safety Report 4690255-0 (Version None)
Quarter: 2005Q2

REPORT INFORMATION
  Report Type: 
  Country: None (occurrence: None)
  Receive Date: 20050615
  Receipt Date: 20050310
  Transmission Date: 20051028
  Serious: Yes (Hospitalization, Disabling)
  Sender: FDA-Public Use
  Company Number: US-MERCK-0503USA01921

PATIENT
  Age: 53 Year
  Sex: Male
  Weight: 83 kg

DRUGS (5)
  1. VIOXX [Suspect]
     Indication: OSTEOARTHRITIS
     Route: 048
     Dates: start: 20000301, end: 20020101
  2. PRILOSEC [Concomitant]
     Route: 065
  3. ZOCOR [Concomitant]
     Route: 065
     Dates: start: 20010101, end: 20040101
  4. ATENOLOL [Concomitant]
     Route: 065
  5. EXTRA STRENGTH TYLENOL [Concomitant]
     Route: 065
     Dates: start: 20011001

REACTIONS (26)
  - ARTHROPATHY [None]
  - BLOOD CHOLESTEROL INCREASED [None]
  - CARPAL TUNNEL SYNDROME [None]
  - CHEST DISCOMFORT [None]
  - CHEST PAIN [None]
  - CONVULSION [None]
  - CORONARY ARTERY DISEASE [None]
  - DILATATION ATRIAL [None]
  - DYSPNOEA EXERTIONAL [None]
  - ELECTROCARDIOGRAM ST SEGMENT DEPRESSION [None]
  - EMOTIONAL DISTRESS [None]
  - GASTRITIS EROSIVE [None]
  - GASTROOESOPHAGEAL REFLUX DISEASE [None]
  - HYPERTENSION [None]
  - MITRAL VALVE INCOMPETENCE [None]
  - MYOCARDIAL INFARCTION [None]
  - PALPITATIONS [None]
  - PULMONARY VALVE INCOMPETENCE [None]
  - ROTATOR CUFF SYNDROME [None]
  - SINUS BRADYCARDIA [None]
  - SLEEP APNOEA SYNDROME [None]
  - SPINAL DISORDER [None]
  - TRICUSPID VALVE INCOMPETENCE [None]
  - VENTRICULAR EXTRASYSTOLES [None]
  - VENTRICULAR HYPERTROPHY [None]
  - VENTRICULAR HYPOKINESIA [None]
